FAERS Safety Report 8903760 (Version 1)
Quarter: 2012Q4

REPORT INFORMATION
  Report Type: 
  Country: US (occurrence: US)
  Receive Date: 20121113
  Receipt Date: 20121113
  Transmission Date: 20130627
  Serious: No
  Sender: FDA-Public Use
  Company Number: US-AMGEN-USASP2012009997

PATIENT
  Age: 56 Year
  Sex: Female

DRUGS (1)
  1. ENBREL [Suspect]
     Indication: PSORIASIS
     Dosage: 50 mg, 2 times/wk
     Dates: start: 20091116

REACTIONS (6)
  - Induration [Not Recovered/Not Resolved]
  - Erythema [Not Recovered/Not Resolved]
  - Local swelling [Not Recovered/Not Resolved]
  - Scratch [Not Recovered/Not Resolved]
  - Haemorrhage [Not Recovered/Not Resolved]
  - Scab [Not Recovered/Not Resolved]
